FAERS Safety Report 24715423 (Version 1)
Quarter: 2024Q4

REPORT INFORMATION
  Report Type: Spontaneous
  Country: US (occurrence: US)
  Receive Date: 20241210
  Receipt Date: 20241210
  Transmission Date: 20250114
  Serious: No
  Sender: Haleon PLC
  Company Number: US-HALEON-2213600

PATIENT

DRUGS (1)
  1. THERAFLU SEVERE COLD RELIEF NIGHTTIME SOFT CHEWS [Suspect]
     Active Substance: ACETAMINOPHEN\DIPHENHYDRAMINE HYDROCHLORIDE
     Indication: Product used for unknown indication

REACTIONS (2)
  - Hypoaesthesia oral [Unknown]
  - Hiccups [Unknown]
